FAERS Safety Report 25785115 (Version 1)
Quarter: 2025Q3

REPORT INFORMATION
  Report Type: Spontaneous
  Country: US (occurrence: US)
  Receive Date: 20250910
  Receipt Date: 20250910
  Transmission Date: 20251021
  Serious: No
  Sender: Steriscience PTE
  Company Number: US-STERISCIENCE B.V.-2025-ST-001423

PATIENT
  Age: 35 Year
  Sex: Female

DRUGS (3)
  1. MEROPENEM [Suspect]
     Active Substance: MEROPENEM
     Indication: Meningococcal infection
     Route: 065
  2. MEROPENEM [Suspect]
     Active Substance: MEROPENEM
     Indication: Pneumonia bacterial
  3. SULFAMETHOXAZOLE\TRIMETHOPRIM [Suspect]
     Active Substance: SULFAMETHOXAZOLE\TRIMETHOPRIM
     Indication: Moraxella infection
     Route: 065

REACTIONS (2)
  - Contraindicated product administered [Unknown]
  - Maternal exposure during pregnancy [Unknown]
